FAERS Safety Report 5584609-8 (Version None)
Quarter: 2008Q1

REPORT INFORMATION
  Report Type: 
  Country: None (occurrence: None)
  Receive Date: 20080103
  Receipt Date: 20071224
  Transmission Date: 20080703
  Serious: Yes (Hospitalization, Disabling, Other)
  Sender: FDA-Public Use
  Company Number: 114-C5013-07060498

PATIENT
  Age: 43 Year
  Sex: Female
  Weight: 78 kg

DRUGS (3)
  1. CC-5013 (LENALIDOMIDE) (CAPSULES) [Suspect]
     Indication: MULTIPLE MYELOMA
     Dosage: 25 MG, 1 IN 1 D, ORAL
     Route: 048
     Dates: start: 20070501, end: 20070515
  2. DEXAMETHASONE TAB [Concomitant]
  3. PREGABALIN (PREGABALIN) [Concomitant]

REACTIONS (5)
  - ACUTE ABDOMEN [None]
  - ARTERIAL THROMBOSIS [None]
  - GASTROINTESTINAL NECROSIS [None]
  - IMPAIRED HEALING [None]
  - INTESTINAL ULCER [None]
